FAERS Safety Report 7740213-4 (Version None)
Quarter: 2011Q3

REPORT INFORMATION
  Report Type: 
  Country: None (occurrence: None)
  Receive Date: 20110909
  Receipt Date: 20110909
  Transmission Date: 20111222
  Serious: Yes (Other)
  Sender: FDA-Public Use
  Company Number: None

PATIENT
  Age: 47 Year
  Sex: Male
  Weight: 81.646 kg

DRUGS (1)
  1. LEVOFLOXACIN [Suspect]
     Indication: PROSTATITIS
     Dosage: 1
     Route: 048
     Dates: start: 20110828, end: 20110907

REACTIONS (5)
  - VISION BLURRED [None]
  - ARTHRALGIA [None]
  - PRODUCT SUBSTITUTION ISSUE [None]
  - JOINT STIFFNESS [None]
  - JOINT SWELLING [None]
